FAERS Safety Report 4394139-7 (Version None)
Quarter: 2004Q3

REPORT INFORMATION
  Report Type: 
  Country: None (occurrence: None)
  Receive Date: 20040706
  Receipt Date: 20040628
  Transmission Date: 20050211
  Serious: No
  Sender: FDA-Public Use
  Company Number: 2004UW13406

PATIENT

DRUGS (2)
  1. SEROQUEL [Suspect]
     Dosage: 400 MG BID PO
     Route: 048
  2. ZOLOFT [Suspect]
     Dosage: 150 MG

REACTIONS (1)
  - SEROTONIN SYNDROME [None]
